FAERS Safety Report 6410541-3 (Version None)
Quarter: 2009Q4

REPORT INFORMATION
  Report Type: 
  Country: None (occurrence: None)
  Receive Date: 20091022
  Receipt Date: 20091019
  Transmission Date: 20100525
  Serious: Yes (Hospitalization)
  Sender: FDA-Public Use
  Company Number: US-BRISTOL-MYERS SQUIBB COMPANY-14822753

PATIENT
  Age: 69 Year
  Sex: Male

DRUGS (24)
  1. CYTOXAN [Suspect]
     Route: 065
     Dates: start: 20090615
  2. REVLIMID [Suspect]
     Indication: MULTIPLE MYELOMA
     Dosage: FORMULATION:CAPS INTERRUPTED ON JUN09
     Route: 048
     Dates: start: 20090601
  3. LASIX [Suspect]
     Indication: PLEURAL EFFUSION
     Route: 065
  4. VELCADE [Concomitant]
     Dosage: ON 18JUN09:244 MG
     Route: 065
     Dates: start: 20090615
  5. ALLOPURINOL [Concomitant]
     Route: 065
  6. DEXAMETHASONE [Concomitant]
     Dosage: 1 DF=4 UNIT NOS
     Route: 065
  7. DIFLUCAN [Concomitant]
     Dosage: 1DF=200 UNIT NOS
     Route: 065
  8. LOPRESSOR [Concomitant]
     Dosage: 1 DF=200 UNIT NOS
     Route: 065
  9. MAGNESIUM CITRATE [Concomitant]
     Dosage: 1 DF=1 BOTTLE
     Route: 065
  10. MILK OF MAGNESIA TAB [Concomitant]
  11. NORCO [Concomitant]
     Dosage: 1 DF=10/325 UNIT NOS 1 Q 4
     Route: 065
  12. COMPAZINE [Concomitant]
     Dosage: 1DF=10 UNIT NOS Q 6 PRN
     Route: 065
  13. SENOKOT [Concomitant]
     Dosage: PRN
     Route: 065
  14. ACETAMINOPHEN [Concomitant]
     Dosage: Q4PRN
     Route: 065
  15. ZOVIRAX [Concomitant]
     Route: 065
  16. BACTRIM DS [Concomitant]
     Dosage: 1DF=1 UNIT NOS
     Route: 065
  17. MIRALAX [Concomitant]
     Route: 065
  18. MEGACE [Concomitant]
     Route: 065
  19. POTASSIUM PHOSPHATES [Concomitant]
     Dosage: 1DF=1 PACKET
     Route: 065
  20. XOPENEX [Concomitant]
     Dosage: METERED DOSE ( 2QID PRN)
     Route: 055
  21. PROTONIX [Concomitant]
     Dosage: 1DF=40 UNIT NOS
     Route: 065
  22. COUMADIN [Concomitant]
     Dosage: QOD ALTERNATING WITH 2
     Route: 065
  23. METAMUCIL [Concomitant]
     Dosage: 1DF=1 PACKET
     Route: 048
  24. OXYGEN [Concomitant]
     Route: 045

REACTIONS (4)
  - DEHYDRATION [None]
  - HYPOPHOSPHATAEMIA [None]
  - NEUTROPENIA [None]
  - PNEUMONIA [None]
